FAERS Safety Report 13423903 (Version 1)
Quarter: 2017Q2

REPORT INFORMATION
  Report Type: Spontaneous
  Country: US (occurrence: US)
  Receive Date: 20170410
  Receipt Date: 20170410
  Transmission Date: 20170830
  Serious: No
  Sender: FDA-Public Use
  Company Number: US-BEH-2016061577

PATIENT
  Sex: Female

DRUGS (1)
  1. STIMATE [Suspect]
     Active Substance: DESMOPRESSIN ACETATE
     Indication: PRODUCT USED FOR UNKNOWN INDICATION
     Dosage: ??-???-2012; 4 TOTAL SPRAYS
     Route: 045

REACTIONS (2)
  - Flushing [Unknown]
  - Accidental overdose [Unknown]

NARRATIVE: CASE EVENT DATE: 2012
